FAERS Safety Report 19124261 (Version 1)
Quarter: 2021Q2

REPORT INFORMATION
  Report Type: Spontaneous
  Country: GB (occurrence: GB)
  Receive Date: 20210412
  Receipt Date: 20210412
  Transmission Date: 20210717
  Serious: Yes (Other)
  Sender: FDA-Public Use
  Company Number: GB-MYLANLABS-2021M1013667

PATIENT
  Age: 51 Year
  Sex: Female
  Weight: 108 kg

DRUGS (6)
  1. CLOZARIL [Suspect]
     Active Substance: CLOZAPINE
     Dosage: UNK
     Dates: start: 20210312
  2. SODIUM VALPROATE [Concomitant]
     Active Substance: VALPROATE SODIUM
     Indication: AFFECTIVE DISORDER
     Dosage: 1000 MILLIGRAM, BID, LESS THAN 1 YEAR
     Route: 048
  3. ZUCLOPENTHIXOL                     /00876704/ [Concomitant]
     Active Substance: ZUCLOPENTHIXOL
     Indication: SCHIZOPHRENIA
     Dosage: 10 MILLIGRAM, BID, LESS THAN 1 YEAR
     Route: 048
  4. PIRENZEPINE [Concomitant]
     Active Substance: PIRENZEPINE
     Indication: SALIVARY HYPERSECRETION
     Dosage: 50 MILLIGRAM, BID, LESS THAN 1 YEAR
     Route: 048
  5. CLOZARIL [Suspect]
     Active Substance: CLOZAPINE
     Indication: SCHIZOPHRENIA
     Dosage: UNK
     Route: 048
     Dates: start: 20010701
  6. DULOXETINE                         /01749302/ [Concomitant]
     Active Substance: DULOXETINE
     Indication: DEPRESSION
     Dosage: 40 MILLIGRAM, BID, LESS THAN 1 YEAR
     Route: 048

REACTIONS (2)
  - SARS-CoV-2 test positive [Recovered/Resolved]
  - Neutrophil count decreased [Recovered/Resolved]

NARRATIVE: CASE EVENT DATE: 20210226
